FAERS Safety Report 6439213-6 (Version None)
Quarter: 2009Q4

REPORT INFORMATION
  Report Type: 
  Country: None (occurrence: None)
  Receive Date: 20091113
  Receipt Date: 20091103
  Transmission Date: 20100525
  Serious: Yes (Other)
  Sender: FDA-Public Use
  Company Number: SE-ELI_LILLY_AND_COMPANY-SE200911000904

PATIENT
  Sex: Female

DRUGS (4)
  1. OLANZAPINE [Suspect]
     Indication: SCHIZOPHRENIA
     Dosage: 5 MG, DAILY (1/D)
     Route: 065
     Dates: start: 20090101
  2. PROPAVAN [Concomitant]
     Dosage: UNK, UNKNOWN
     Route: 065
  3. STILNOCT [Concomitant]
     Dosage: UNK, UNKNOWN
     Route: 065
  4. STESOLID [Concomitant]
     Dosage: UNK, UNKNOWN
     Route: 065

REACTIONS (1)
  - POLYMENORRHOEA [None]
